FAERS Safety Report 16678791 (Version 1)
Quarter: 2019Q3

REPORT INFORMATION
  Report Type: Spontaneous
  Country: US (occurrence: US)
  Receive Date: 20190806
  Receipt Date: 20190806
  Transmission Date: 20191004
  Serious: No
  Sender: FDA-Public Use
  Company Number: None

PATIENT
  Age: 41 Year
  Sex: Male
  Weight: 137.7 kg

DRUGS (1)
  1. BASAGLAR [Suspect]
     Active Substance: INSULIN GLARGINE
     Indication: GLYCOSYLATED HAEMOGLOBIN DECREASED

REACTIONS (8)
  - Somnolence [None]
  - Headache [None]
  - Throat irritation [None]
  - Blood glucose increased [None]
  - Feeling abnormal [None]
  - Arthralgia [None]
  - Myalgia [None]
  - Disturbance in attention [None]

NARRATIVE: CASE EVENT DATE: 20190806
